FAERS Safety Report 8954560 (Version 1)
Quarter: 2012Q4

REPORT INFORMATION
  Report Type: 
  Country: FR (occurrence: FR)
  Receive Date: 20121209
  Receipt Date: 20121209
  Transmission Date: 20130627
  Serious: Yes (Hospitalization, Other)
  Sender: FDA-Public Use
  Company Number: FR-ABBOTT-12P-056-1015901-00

PATIENT
  Age: 89 Year
  Sex: Female

DRUGS (13)
  1. ZECLAR [Suspect]
     Indication: HELICOBACTER INFECTION
     Route: 048
     Dates: start: 20120918, end: 20120929
  2. TIORFAN [Suspect]
     Indication: DYSPEPSIA
     Route: 048
     Dates: start: 20120925
  3. CLAMOXYL [Suspect]
     Indication: HELICOBACTER INFECTION
     Route: 048
     Dates: start: 20120918, end: 20120929
  4. FLAGYL [Suspect]
     Indication: HELICOBACTER INFECTION
     Route: 048
     Dates: start: 20120918, end: 20120929
  5. FUSIDIC ACID [Suspect]
     Indication: ERYSIPELAS
     Route: 048
     Dates: start: 20121010, end: 20121020
  6. SPASFON-LYOC [Suspect]
     Indication: DYSPEPSIA
     Route: 048
     Dates: start: 20120925
  7. UTRALEVURE [Suspect]
     Indication: DYSPEPSIA
     Route: 048
     Dates: start: 20120925
  8. IPERTEN [Suspect]
     Indication: HYPERTENSION
     Route: 048
     Dates: start: 20120918, end: 20121011
  9. FLUDEX [Suspect]
     Indication: HYPERTENSION
     Route: 048
     Dates: start: 20121011, end: 20121020
  10. SERETIDE [Concomitant]
     Indication: PRODUCT USED FOR UNKNOWN INDICATION
     Dosage: Twice
     Route: 048
  11. PARIET [Concomitant]
     Indication: PRODUCT USED FOR UNKNOWN INDICATION
     Route: 048
  12. TARDYFERON [Concomitant]
     Indication: PRODUCT USED FOR UNKNOWN INDICATION
     Dosage: Once
     Route: 048
  13. KENZEN [Concomitant]
     Indication: PRODUCT USED FOR UNKNOWN INDICATION
     Dates: end: 20120918

REACTIONS (10)
  - Toxic skin eruption [Unknown]
  - Rash maculo-papular [Recovered/Resolved]
  - Hepatitis cholestatic [Recovered/Resolved]
  - Dyspepsia [Unknown]
  - Oedema peripheral [Unknown]
  - Ecchymosis [Unknown]
  - Escherichia urinary tract infection [Unknown]
  - Anaemia macrocytic [Unknown]
  - Epstein-Barr virus test positive [Unknown]
  - Blood thyroid stimulating hormone increased [Unknown]
